FAERS Safety Report 11272985 (Version 1)
Quarter: 2015Q3

REPORT INFORMATION
  Report Type: Report from Study
  Country: US (occurrence: US)
  Receive Date: 20150715
  Receipt Date: 20150715
  Transmission Date: 20151125
  Serious: Yes (Other)
  Sender: FDA-Public Use
  Company Number: US-PFIZER INC-2015230976

PATIENT
  Sex: Female

DRUGS (1)
  1. ETHINYL ESTRADIOL/NORGESTREL [Suspect]
     Active Substance: ETHINYL ESTRADIOL\NORGESTREL
     Indication: MENORRHAGIA
     Dosage: 1 DF, 1X/DAY
     Route: 048

REACTIONS (3)
  - Depression [Unknown]
  - Seizure [Unknown]
  - Condition aggravated [Unknown]
